FAERS Safety Report 11830235 (Version 3)
Quarter: 2015Q4

REPORT INFORMATION
  Report Type: Spontaneous
  Country: US (occurrence: US)
  Receive Date: 20151214
  Receipt Date: 20151214
  Transmission Date: 20160305
  Serious: Yes (Disabling)
  Sender: FDA-Public Use
  Company Number: US-JNJFOC-PRIUSA2000002337

PATIENT
  Age: 46 Year
  Sex: Female
  Weight: 52.16 kg

DRUGS (2)
  1. LEVAQUIN [Suspect]
     Active Substance: LEVOFLOXACIN
     Indication: BRONCHITIS
     Route: 048
     Dates: start: 20000207
  2. LEVAQUIN [Suspect]
     Active Substance: LEVOFLOXACIN
     Indication: BRONCHITIS
     Route: 048

REACTIONS (6)
  - Nausea [Recovered/Resolved]
  - Myalgia [Unknown]
  - Eye pain [Recovering/Resolving]
  - Disturbance in attention [Recovered/Resolved]
  - Arthralgia [Recovering/Resolving]
  - Flatulence [Recovered/Resolved]
